FAERS Safety Report 4277980-0 (Version None)
Quarter: 2004Q1

REPORT INFORMATION
  Report Type: 
  Country: None (occurrence: None)
  Receive Date: 20040121
  Receipt Date: 20040119
  Transmission Date: 20041129
  Serious: Yes (Hospitalization)
  Sender: FDA-Public Use
  Company Number: FRWYE302918SEP03

PATIENT
  Age: 52 Year
  Sex: Male

DRUGS (4)
  1. RAPAMUNE [Suspect]
     Indication: PROPHYLAXIS AGAINST TRANSPLANT REJECTION
     Dosage: SEE IMAGE
     Route: 048
     Dates: start: 20030725, end: 20030825
  2. RAPAMUNE [Suspect]
     Indication: PROPHYLAXIS AGAINST TRANSPLANT REJECTION
     Dosage: SEE IMAGE
     Route: 048
     Dates: start: 20030826
  3. RAPAMUNE [Suspect]
     Dosage: 10 MG 1X PER 1 DAY; ORAL
     Route: 048
     Dates: start: 20030826
  4. CELLCEPT [Suspect]
     Indication: PROPHYLAXIS AGAINST TRANSPLANT REJECTION
     Dosage: 2 G 1X PER 1 DAY; ORAL
     Route: 048
     Dates: start: 20030724

REACTIONS (4)
  - ARTHRITIS INFECTIVE [None]
  - BLOOD CREATININE INCREASED [None]
  - CATHETER RELATED INFECTION [None]
  - MYCOPLASMA INFECTION [None]
